FAERS Safety Report 24968144 (Version 1)
Quarter: 2025Q1

REPORT INFORMATION
  Report Type: Spontaneous
  Country: US (occurrence: US)
  Receive Date: 20250214
  Receipt Date: 20250214
  Transmission Date: 20250409
  Serious: Yes (Hospitalization)
  Sender: ROCHE
  Company Number: US-ROCHE-10000201306

PATIENT
  Age: 43 Year
  Sex: Male
  Weight: 83.46 kg

DRUGS (1)
  1. OCREVUS [Suspect]
     Active Substance: OCRELIZUMAB
     Indication: Relapsing-remitting multiple sclerosis
     Route: 042

REACTIONS (2)
  - Colitis ulcerative [Unknown]
  - Colitis microscopic [Unknown]

NARRATIVE: CASE EVENT DATE: 20240921
